FAERS Safety Report 9025654 (Version 2)
Quarter: 2013Q2

REPORT INFORMATION
  Report Type: Spontaneous
  Country: US (occurrence: US)
  Receive Date: 20130123
  Receipt Date: 20130509
  Transmission Date: 20140414
  Serious: Yes (Hospitalization, Other)
  Sender: FDA-Public Use
  Company Number: US-009507513-1210USA013745

PATIENT
  Age: 32 Year
  Sex: Male

DRUGS (11)
  1. PEGINTRON [Suspect]
     Indication: HEPATITIS C
     Dosage: REDIPEN
     Dates: start: 20120624
  2. PEGINTRON [Suspect]
     Dosage: 120 MICROGRAM, REDIPEN
     Dates: start: 20120801, end: 20130213
  3. RIBAVIRIN [Suspect]
     Indication: HEPATITIS C
     Dosage: UNK
     Dates: start: 20120624
  4. RIBAVIRIN [Suspect]
     Dosage: 1200 MG, UNK
     Dates: start: 20120801, end: 20130213
  5. VICTRELIS [Suspect]
     Indication: HEPATITIS C
     Dosage: UNK
     Dates: start: 20121020
  6. VICTRELIS [Suspect]
     Dosage: 9.6 G, UNK
     Dates: start: 20120801, end: 20130213
  7. XANAX [Concomitant]
     Dosage: UNK
  8. AMBIEN [Concomitant]
     Dosage: UNK
  9. PROZAC [Concomitant]
     Dosage: UNK
  10. NICOTINE [Concomitant]
     Dosage: UNK
  11. MUPIROCIN [Concomitant]
     Dosage: UNK

REACTIONS (16)
  - Abnormal behaviour [Unknown]
  - Bipolar disorder [Unknown]
  - Mood swings [Unknown]
  - Pallor [Unknown]
  - Anaemia [Recovering/Resolving]
  - Back pain [Unknown]
  - Anaemia [Unknown]
  - Vomiting [Unknown]
  - Vomiting [Unknown]
  - Nausea [Unknown]
  - Decreased appetite [Unknown]
  - White blood cell count decreased [Unknown]
  - Fatigue [Unknown]
  - Asthenia [Unknown]
  - Dizziness [Unknown]
  - Dyspnoea [Unknown]
